FAERS Safety Report 22258827 (Version 1)
Quarter: 2023Q2

REPORT INFORMATION
  Report Type: Spontaneous
  Country: GB (occurrence: GB)
  Receive Date: 20230427
  Receipt Date: 20230427
  Transmission Date: 20230722
  Serious: Yes (Other)
  Sender: FDA-Public Use
  Company Number: GB-SUN PHARMACEUTICAL INDUSTRIES LTD-2023R1-386769

PATIENT
  Age: 63 Year
  Sex: Male

DRUGS (8)
  1. CLOPIDOGREL [Suspect]
     Active Substance: CLOPIDOGREL BISULFATE
     Indication: Coronary artery bypass
     Dosage: UNK
     Route: 065
  2. CLOPIDOGREL [Suspect]
     Active Substance: CLOPIDOGREL BISULFATE
     Indication: Asthma
  3. PREDNISOLONE [Suspect]
     Active Substance: PREDNISOLONE
     Indication: Coronary artery bypass
     Dosage: UNK
     Route: 065
  4. PREDNISOLONE [Suspect]
     Active Substance: PREDNISOLONE
     Indication: Asthma
  5. IVABRADINE [Suspect]
     Active Substance: IVABRADINE
     Indication: Asthma
     Dosage: UNK
     Route: 065
  6. IVABRADINE [Suspect]
     Active Substance: IVABRADINE
     Indication: Coronary artery bypass
  7. LANSOPRAZOLE [Suspect]
     Active Substance: LANSOPRAZOLE
     Indication: Coronary artery bypass
     Dosage: UNK
     Route: 065
  8. LANSOPRAZOLE [Suspect]
     Active Substance: LANSOPRAZOLE
     Indication: Asthma

REACTIONS (1)
  - Pseudolymphoma [Unknown]
